FAERS Safety Report 5538276-X (Version None)
Quarter: 2007Q4

REPORT INFORMATION
  Report Type: 
  Country: None (occurrence: None)
  Receive Date: 20071205
  Receipt Date: 20071113
  Transmission Date: 20080405
  Serious: Yes (Death)
  Sender: FDA-Public Use
  Company Number: 2007S1000819

PATIENT
  Sex: Female

DRUGS (3)
  1. DARVON [Suspect]
     Indication: BACK PAIN
     Dosage: PO
     Route: 048
     Dates: end: 20040701
  2. DARVON [Suspect]
     Indication: PAIN IN EXTREMITY
     Dosage: PO
     Route: 048
     Dates: end: 20040701
  3. DARVON [Suspect]
     Indication: PROCEDURAL PAIN
     Dosage: PO
     Route: 048
     Dates: end: 20040701

REACTIONS (2)
  - CARDIOVASCULAR DISORDER [None]
  - DRUG TOXICITY [None]
